FAERS Safety Report 7119305-9 (Version None)
Quarter: 2010Q4

REPORT INFORMATION
  Report Type: 
  Country: None (occurrence: None)
  Receive Date: 20101123
  Receipt Date: 20101115
  Transmission Date: 20110411
  Serious: Yes (Death, Life-Threatening)
  Sender: FDA-Public Use
  Company Number: US-CELGENEUS-163-21880-10071947

PATIENT
  Sex: Female

DRUGS (12)
  1. REVLIMID [Suspect]
     Route: 048
     Dates: start: 20100503, end: 20100719
  2. FLOVENT [Concomitant]
     Route: 065
  3. OMEPRAZOLE [Concomitant]
     Route: 065
  4. PROAIR HFA [Concomitant]
     Route: 065
  5. LEVOTHYROXINE SODIUM [Concomitant]
     Route: 065
  6. CARBIDOPA AND LEVODOPA [Concomitant]
     Route: 065
  7. CALTRATE [Concomitant]
     Route: 065
  8. LASIX [Concomitant]
     Route: 065
  9. STOOL SOFTENER [Concomitant]
     Route: 065
  10. TUMS [Concomitant]
     Route: 065
  11. WHOLE BLOOD [Concomitant]
     Route: 051
  12. PLATELETS [Concomitant]
     Route: 051

REACTIONS (2)
  - MYELODYSPLASTIC SYNDROME [None]
  - NO THERAPEUTIC RESPONSE [None]
